FAERS Safety Report 20446077 (Version 1)
Quarter: 2022Q1

REPORT INFORMATION
  Report Type: Spontaneous
  Country: US (occurrence: None)
  Receive Date: 20220208
  Receipt Date: 20220208
  Transmission Date: 20220423
  Serious: Yes (Disabling, Other)
  Sender: FDA-Public Use
  Company Number: None

PATIENT
  Age: 64 Year
  Sex: Male
  Weight: 81 kg

DRUGS (6)
  1. GADOLINIUM [Suspect]
     Active Substance: GADOLINIUM
  2. LISINOPRIL [Concomitant]
     Active Substance: LISINOPRIL
  3. PROPRANOLOL [Concomitant]
     Active Substance: PROPRANOLOL HYDROCHLORIDE
  4. TAMSULOSIN [Concomitant]
     Active Substance: TAMSULOSIN
  5. IRON [Concomitant]
     Active Substance: IRON
  6. VITAMIN D [Concomitant]
     Active Substance: VITAMIN D NOS

REACTIONS (9)
  - Tinnitus [None]
  - Balance disorder [None]
  - Quality of life decreased [None]
  - Dermatitis [None]
  - Pruritus [None]
  - Paraesthesia [None]
  - Nail discolouration [None]
  - Nail disorder [None]
  - Onychoclasis [None]

NARRATIVE: CASE EVENT DATE: 20210523
